FAERS Safety Report 8409422-5 (Version None)
Quarter: 2012Q2

REPORT INFORMATION
  Report Type: 
  Country: None (occurrence: None)
  Receive Date: 20120605
  Receipt Date: 20120526
  Transmission Date: 20120825
  Serious: Yes (Death, Other)
  Sender: FDA-Public Use
  Company Number: FR-PAR PHARMACEUTICAL, INC-2012SCPR004404

PATIENT

DRUGS (4)
  1. PRAMIPEXOLE DIHYDROCHLORIDE [Suspect]
     Dosage: 4.5 DF, / DAY
     Route: 065
  2. FLUOXETINE [Suspect]
     Indication: DEPRESSION
     Dosage: 20 MG, / DAY
     Route: 065
  3. PRAMIPEXOLE DIHYDROCHLORIDE [Suspect]
     Indication: PARKINSON'S DISEASE
     Dosage: 0.7 MG, TID
     Route: 065
  4. L-DOPA+BENSERAZIDE [Concomitant]
     Indication: PARKINSON'S DISEASE
     Dosage: 62.5 MG, TID
     Route: 065

REACTIONS (4)
  - FALL [None]
  - COMPLETED SUICIDE [None]
  - DEATH [None]
  - ANXIETY [None]
